FAERS Safety Report 21902837 (Version 1)
Quarter: 2023Q1

REPORT INFORMATION
  Report Type: Spontaneous
  Country: US (occurrence: US)
  Receive Date: 20230124
  Receipt Date: 20230124
  Transmission Date: 20230418
  Serious: No
  Sender: FDA-Public Use
  Company Number: US-BoehringerIngelheim-2023-BI-214040

PATIENT
  Sex: Male

DRUGS (1)
  1. GILOTRIF [Suspect]
     Active Substance: AFATINIB
     Indication: Lung disorder
     Dates: start: 202210

REACTIONS (2)
  - Prostatomegaly [Not Recovered/Not Resolved]
  - Urinary retention [Not Recovered/Not Resolved]
